FAERS Safety Report 21700511 (Version 2)
Quarter: 2022Q4

REPORT INFORMATION
  Report Type: Report from Study
  Country: GB (occurrence: None)
  Receive Date: 20221208
  Receipt Date: 20221212
  Transmission Date: 20230112
  Serious: Yes (Death)
  Sender: FDA-Public Use
  Company Number: 2022A399201

PATIENT
  Age: 83 Year
  Sex: Male

DRUGS (1)
  1. LOKELMA [Suspect]
     Active Substance: SODIUM ZIRCONIUM CYCLOSILICATE
     Indication: Hyperkalaemia
     Route: 048

REACTIONS (1)
  - Death [Fatal]
